FAERS Safety Report 8174901-5 (Version None)
Quarter: 2012Q1

REPORT INFORMATION
  Report Type: 
  Country: None (occurrence: None)
  Receive Date: 20120229
  Receipt Date: 20110615
  Transmission Date: 20120608
  Serious: No
  Sender: FDA-Public Use
  Company Number: US-GLAXOSMITHKLINE-A0932822A

PATIENT
  Sex: Male

DRUGS (1)
  1. VALTREX [Suspect]
     Indication: CHRONIC FATIGUE SYNDROME
     Dosage: 1G THREE TIMES PER DAY
     Dates: start: 20110613, end: 20110620

REACTIONS (3)
  - THIRST [None]
  - HEADACHE [None]
  - DIZZINESS [None]
